FAERS Safety Report 4495963-2 (Version None)
Quarter: 2004Q4

REPORT INFORMATION
  Report Type: 
  Country: None (occurrence: None)
  Receive Date: 20040927
  Receipt Date: 20040615
  Transmission Date: 20050328
  Serious: No
  Sender: FDA-Public Use
  Company Number: USA040567215

PATIENT
  Age: 45 Year
  Sex: Female
  Weight: 73 kg

DRUGS (4)
  1. STRATTERA [Suspect]
     Indication: ATTENTION DEFICIT/HYPERACTIVITY DISORDER
     Dosage: 40 MG DAY
     Dates: start: 20040506
  2. ZOLOFT [Concomitant]
  3. AEROBID [Concomitant]
  4. TEMAZEPAM [Concomitant]

REACTIONS (3)
  - DRY MOUTH [None]
  - FEELING ABNORMAL [None]
  - VISION BLURRED [None]
